FAERS Safety Report 7019856-1 (Version None)
Quarter: 2010Q3

REPORT INFORMATION
  Report Type: 
  Country: None (occurrence: None)
  Receive Date: 20100923
  Receipt Date: 20100913
  Transmission Date: 20110219
  Serious: Yes (Other)
  Sender: FDA-Public Use
  Company Number: 018705

PATIENT
  Sex: Male
  Weight: 37 kg

DRUGS (1)
  1. LACOSAMIDE [Suspect]
     Indication: CONVULSION
     Dosage: 100 MG BID, TWO 50 MG BID TOTALING 200 MG ORAL
     Route: 048
     Dates: start: 20100501

REACTIONS (1)
  - GRAND MAL CONVULSION [None]
